FAERS Safety Report 10204784 (Version 3)
Quarter: 2015Q2

REPORT INFORMATION
  Report Type: Spontaneous
  Country: US (occurrence: US)
  Receive Date: 20140529
  Receipt Date: 20150528
  Transmission Date: 20150821
  Serious: Yes (Death, Congenital Anomaly, Other)
  Sender: FDA-Public Use
  Company Number: US-ELI_LILLY_AND_COMPANY-US201405008553

PATIENT
  Age: 2 Day

DRUGS (3)
  1. PROZAC [Suspect]
     Active Substance: FLUOXETINE HYDROCHLORIDE
     Indication: DEPRESSION
     Dosage: UNK, UNKNOWN
     Route: 015
  2. DEMEROL [Concomitant]
     Active Substance: MEPERIDINE HYDROCHLORIDE
     Indication: LABOUR PAIN
  3. PITOCIN [Concomitant]
     Active Substance: OXYTOCIN
     Indication: LABOUR INDUCTION

REACTIONS (17)
  - Congenital pulmonary artery anomaly [Unknown]
  - Ventricular septal defect [Unknown]
  - Left ventricular hypertrophy [Unknown]
  - Supraventricular tachycardia [Unknown]
  - Grunting [Unknown]
  - Cardiac arrest [Unknown]
  - Patent ductus arteriosus [Unknown]
  - Large for dates baby [Unknown]
  - Congenital tricuspid valve incompetence [Unknown]
  - Wolff-Parkinson-White syndrome congenital [Unknown]
  - Bradycardia [Unknown]
  - Cardiomyopathy [Fatal]
  - Atrial septal defect [Unknown]
  - Ebstein^s anomaly [Unknown]
  - Cyanosis [Unknown]
  - Hypoxia [Fatal]
  - Foetal exposure during pregnancy [Unknown]

NARRATIVE: CASE EVENT DATE: 19940124
